FAERS Safety Report 5342072-6 (Version None)
Quarter: 2007Q2

REPORT INFORMATION
  Report Type: 
  Country: None (occurrence: None)
  Receive Date: 20070410
  Receipt Date: 20061215
  Transmission Date: 20071010
  Serious: Yes (Hospitalization)
  Sender: FDA-Public Use
  Company Number: LUP-0064

PATIENT
  Age: 48 Year
  Sex: Female

DRUGS (2)
  1. LISINOPRIL [Suspect]
     Indication: PROTEINURIA
     Dosage: 5 MG DAILY, ORAL
     Route: 048
  2. LISINOPRIL [Suspect]
     Indication: PROTEINURIA
     Dosage: 5 MG, ORAL
     Route: 048

REACTIONS (1)
  - SMALL BOWEL ANGIOEDEMA [None]
